FAERS Safety Report 9280220 (Version 1)
Quarter: 2013Q2

REPORT INFORMATION
  Report Type: Spontaneous
  Country: US (occurrence: None)
  Receive Date: 20130507
  Receipt Date: 20130507
  Transmission Date: 20140414
  Serious: Yes (Other)
  Sender: FDA-Public Use
  Company Number: None

PATIENT
  Age: 49 Year
  Sex: Female
  Weight: 148.33 kg

DRUGS (2)
  1. NAPROXEN [Suspect]
     Indication: PAIN MANAGEMENT
     Dosage: 9 DOSES
     Route: 048
     Dates: start: 20120716, end: 20120720
  2. NAPROXEN [Suspect]
     Indication: INFLAMMATION
     Dosage: 9 DOSES
     Route: 048
     Dates: start: 20120716, end: 20120720

REACTIONS (4)
  - Uterine haemorrhage [None]
  - Dyspnoea [None]
  - Thyroid haemorrhage [None]
  - Tracheal disorder [None]
